FAERS Safety Report 20963789 (Version 2)
Quarter: 2022Q3

REPORT INFORMATION
  Report Type: Spontaneous
  Country: US (occurrence: US)
  Receive Date: 20220615
  Receipt Date: 20220702
  Transmission Date: 20221027
  Serious: Yes (Life-Threatening, Hospitalization)
  Sender: FDA-Public Use
  Company Number: US-TEVA-2022-US-2045549

PATIENT
  Age: 4 Year
  Sex: Female

DRUGS (5)
  1. DAUNORUBICIN [Suspect]
     Active Substance: DAUNORUBICIN
     Indication: Acute myeloid leukaemia
     Dosage: RECEIVED TWO CYCLES OF INDUCTION
     Route: 040
  2. MITOXANTRONE [Suspect]
     Active Substance: MITOXANTRONE HYDROCHLORIDE
     Indication: Acute myeloid leukaemia
     Dosage: RECEIVED ONE CYCLE OF INTENSIFICATION
     Route: 040
  3. CYTARABINE [Suspect]
     Active Substance: CYTARABINE
     Indication: Acute myeloid leukaemia
     Dosage: RECEIVED TWO CYCLES OF INDUCTION AND THREE CYCLES OF INTENSIFICATION
     Route: 040
  4. ASPARAGINASE [Suspect]
     Active Substance: ASPARAGINASE
     Indication: Acute myeloid leukaemia
     Dosage: RECEIVED ONE CYCLE OF INTESIFICATION
     Route: 065
  5. ETOPOSIDE [Concomitant]
     Active Substance: ETOPOSIDE
     Indication: Acute myeloid leukaemia
     Dosage: RECEIVED TWO CYCLES OF INDUCTION THERAPY AND ONE CYCLE OF INTESIFICATION
     Route: 065

REACTIONS (5)
  - Cardiotoxicity [Recovering/Resolving]
  - Sepsis [Recovering/Resolving]
  - Cardiac failure [Recovering/Resolving]
  - Respiratory distress [Recovering/Resolving]
  - Cardiomyopathy [Recovering/Resolving]
